FAERS Safety Report 8897059 (Version 1)
Quarter: 2012Q4

REPORT INFORMATION
  Report Type: 
  Country: US (occurrence: US)
  Receive Date: 20121108
  Receipt Date: 20121108
  Transmission Date: 20130627
  Serious: No
  Sender: FDA-Public Use
  Company Number: US-AMGEN-USASP2012025505

PATIENT
  Sex: Female
  Weight: 62.59 kg

DRUGS (8)
  1. ENBREL [Suspect]
     Indication: PRODUCT USED FOR UNKNOWN INDICATION
     Dosage: 50 mg, qwk
     Route: 058
  2. ASTELIN                            /00085801/ [Concomitant]
     Dosage: 137 mug, UNK
  3. MELOXICAM [Concomitant]
     Dosage: 15 mg, UNK
  4. METHOTREXATE [Concomitant]
     Dosage: 2.5 mg, UNK
  5. LORAZEPAM [Concomitant]
     Dosage: 1 mg, UNK
  6. FOLIC ACID [Concomitant]
     Dosage: 1 mg, UNK
  7. GLUCOSAMINE + CHONDROITIN          /01430901/ [Concomitant]
  8. MULTIVITAMIN AND MINERAL [Concomitant]

REACTIONS (1)
  - Nasopharyngitis [Unknown]
